FAERS Safety Report 9195091 (Version 1)
Quarter: 2013Q1

REPORT INFORMATION
  Report Type: Spontaneous
  Country: US (occurrence: US)
  Receive Date: 20130328
  Receipt Date: 20130328
  Transmission Date: 20140127
  Serious: No
  Sender: FDA-Public Use
  Company Number: US-ALLERGAN-1302933US

PATIENT
  Age: 78 Year
  Sex: Female

DRUGS (5)
  1. LATISSE 0.03% [Suspect]
     Indication: GROWTH OF EYELASHES
     Dosage: 2 GTT, BI-WEEKLY
     Route: 061
     Dates: start: 201302
  2. LATISSE 0.03% [Suspect]
     Dosage: 2 GTT, UNK
     Route: 061
     Dates: start: 201302
  3. REFRESH DROPS [Concomitant]
     Indication: DRY EYE
  4. BLOOD PRESSURE PILL [Concomitant]
     Indication: HYPERTENSION
  5. ALIGN [Concomitant]
     Indication: GASTRIC DISORDER

REACTIONS (2)
  - Incorrect dose administered [Unknown]
  - Drug ineffective [Unknown]
